FAERS Safety Report 23719195 (Version 1)
Quarter: 2024Q2

REPORT INFORMATION
  Report Type: Spontaneous
  Country: CA (occurrence: CA)
  Receive Date: 20240408
  Receipt Date: 20240408
  Transmission Date: 20240716
  Serious: Yes (Other)
  Sender: FDA-Public Use
  Company Number: CA-INSUD PHARMA-2403CA02821

PATIENT

DRUGS (2)
  1. TESTOSTERONE [Suspect]
     Active Substance: TESTOSTERONE
     Indication: Transgender hormonal therapy
     Dosage: 100 MG WEEKLY
     Route: 058
  2. TESTOSTERONE [Suspect]
     Active Substance: TESTOSTERONE
     Dosage: RESTARTED AFTER SURGERY AND CHEMOTHERAPY
     Route: 058

REACTIONS (12)
  - Endometrial adenocarcinoma [Recovered/Resolved]
  - Metastases to ovary [Recovered/Resolved]
  - Metastases to fallopian tube [Recovered/Resolved]
  - Metastases to thorax [Recovered/Resolved]
  - Pelvic discomfort [Recovered/Resolved]
  - Abnormal uterine bleeding [Recovered/Resolved]
  - Abdominal distension [Recovered/Resolved]
  - Urinary incontinence [Recovered/Resolved]
  - Urinary retention [Recovered/Resolved]
  - Impaired gastric emptying [Recovered/Resolved]
  - Constipation [Recovered/Resolved]
  - Abdominal pain [Recovered/Resolved]
